FAERS Safety Report 6117898-1 (Version None)
Quarter: 2009Q1

REPORT INFORMATION
  Report Type: 
  Country: None (occurrence: None)
  Receive Date: 20090314
  Receipt Date: 20090202
  Transmission Date: 20090719
  Serious: No
  Sender: FDA-Public Use
  Company Number: US-ABBOTT-09P-163-0501152-00

PATIENT
  Sex: Female

DRUGS (3)
  1. HUMIRA [Suspect]
     Indication: PSORIATIC ARTHROPATHY
     Dates: start: 20071227
  2. HUMIRA [Suspect]
  3. HUMIRA [Suspect]
     Dates: start: 20090124

REACTIONS (6)
  - BREAST CALCIFICATIONS [None]
  - DIVERTICULITIS [None]
  - IMPAIRED HEALING [None]
  - IRRITABLE BOWEL SYNDROME [None]
  - SINUSITIS [None]
  - URINARY TRACT INFECTION [None]
